FAERS Safety Report 14762582 (Version 1)
Quarter: 2018Q2

REPORT INFORMATION
  Report Type: Spontaneous
  Country: US (occurrence: US)
  Receive Date: 20180416
  Receipt Date: 20180416
  Transmission Date: 20180711
  Serious: No
  Sender: FDA-Public Use
  Company Number: US-TEVA-2018-US-859835

PATIENT

DRUGS (1)
  1. HYDROCODONE W/IBUPROFEN [Suspect]
     Active Substance: HYDROCODONE\IBUPROFEN
     Indication: PAIN
     Dosage: HYDROCODONE W/IBUPROFEN : 10/325
     Route: 065

REACTIONS (8)
  - Drug effect incomplete [Unknown]
  - Gastrointestinal disorder [Unknown]
  - Pain [Not Recovered/Not Resolved]
  - Vomiting [Unknown]
  - Somnolence [Unknown]
  - Product substitution issue [Unknown]
  - Weight decreased [Unknown]
  - Decreased appetite [Unknown]
